FAERS Safety Report 8969811 (Version 3)
Quarter: 2013Q1

REPORT INFORMATION
  Report Type: Report from Study
  Country: US (occurrence: US)
  Receive Date: 20121217
  Receipt Date: 20130328
  Transmission Date: 20140127
  Serious: Yes (Hospitalization, Other)
  Sender: FDA-Public Use
  Company Number: US-ROCHE-1154834

PATIENT
  Sex: Female

DRUGS (2)
  1. PEG-INTERFERON ALFA 2A [Suspect]
     Indication: HEPATITIS C
     Route: 058
     Dates: start: 20121010, end: 20130320
  2. RIBAVIRIN [Suspect]
     Indication: HEPATITIS C
     Route: 065
     Dates: start: 20121010, end: 20130320

REACTIONS (19)
  - Pyrexia [Unknown]
  - Eye disorder [Unknown]
  - Crying [Unknown]
  - Oral pain [Unknown]
  - Gingival bleeding [Unknown]
  - Glossitis [Recovering/Resolving]
  - Nausea [Unknown]
  - Neck pain [Unknown]
  - Productive cough [Unknown]
  - Headache [Not Recovered/Not Resolved]
  - Dry mouth [Recovering/Resolving]
  - Nasal congestion [Unknown]
  - Glaucoma [Unknown]
  - Cheilitis [Recovering/Resolving]
  - Vomiting [Unknown]
  - Pneumonia [Unknown]
  - Depression [Unknown]
  - Anaemia [Unknown]
  - Blood potassium decreased [Unknown]
